FAERS Safety Report 21947191 (Version 4)
Quarter: 2023Q2

REPORT INFORMATION
  Report Type: Spontaneous
  Country: PT (occurrence: PT)
  Receive Date: 20230202
  Receipt Date: 20230419
  Transmission Date: 20230722
  Serious: Yes (Death)
  Sender: FDA-Public Use
  Company Number: PT-009507513-2302PRT000314

PATIENT
  Age: 46 Year
  Sex: Male
  Weight: 68 kg

DRUGS (2)
  1. KEYTRUDA [Suspect]
     Active Substance: PEMBROLIZUMAB
     Indication: Renal cancer metastatic
     Dosage: 200 MILLIGRAM, EVERY 2 WEEKS
     Route: 042
     Dates: start: 20220705, end: 20220927
  2. INLYTA [Suspect]
     Active Substance: AXITINIB
     Indication: Renal cancer metastatic
     Dosage: 5 MILLIGRAM, Q12H
     Route: 048
     Dates: start: 20220705, end: 20221010

REACTIONS (1)
  - Oesophagomediastinal fistula [Fatal]

NARRATIVE: CASE EVENT DATE: 20221010
